FAERS Safety Report 18653912 (Version 4)
Quarter: 2023Q2

REPORT INFORMATION
  Report Type: Report from Study
  Country: US (occurrence: US)
  Receive Date: 20201223
  Receipt Date: 20230630
  Transmission Date: 20230722
  Serious: Yes (Other)
  Sender: FDA-Public Use
  Company Number: US-GW PHARMA-202012USGW04435

PATIENT
  Sex: Male
  Weight: 78.458 kg

DRUGS (2)
  1. EPIDIOLEX [Suspect]
     Active Substance: CANNABIDIOL
     Indication: Tuberous sclerosis complex
     Dosage: 1000 MILLIGRAM, BID (FIRST SHIPPED ON 19 NOV 2020)
     Route: 048
     Dates: start: 202011
  2. EPIDIOLEX [Suspect]
     Active Substance: CANNABIDIOL
     Dosage: 8 MILLILITER, BID
     Route: 048

REACTIONS (7)
  - SARS-CoV-2 test positive [Unknown]
  - Lung disorder [Unknown]
  - Cough [Unknown]
  - Dehydration [Unknown]
  - Asthenia [Unknown]
  - Pyrexia [Unknown]
  - COVID-19 [Unknown]

NARRATIVE: CASE EVENT DATE: 20200101
